FAERS Safety Report 6959984-X (Version None)
Quarter: 2010Q3

REPORT INFORMATION
  Report Type: 
  Country: None (occurrence: None)
  Receive Date: 20100901
  Receipt Date: 20100806
  Transmission Date: 20110219
  Serious: Yes (Other)
  Sender: FDA-Public Use
  Company Number: US-BAYER-201030215NA

PATIENT
  Age: 22 Year
  Sex: Female
  Weight: 68 kg

DRUGS (12)
  1. OCELLA [Suspect]
     Indication: CONTRACEPTION
     Route: 048
     Dates: start: 20080301, end: 20090701
  2. YASMIN [Suspect]
     Indication: CONTRACEPTION
     Route: 048
     Dates: start: 20080301, end: 20090701
  3. YAZ [Suspect]
     Indication: CONTRACEPTION
     Route: 048
     Dates: start: 20080301, end: 20090701
  4. AMOXICILLIN [Concomitant]
     Indication: HELICOBACTER GASTRITIS
     Route: 065
  5. EXCEDRIN (MIGRAINE) [Concomitant]
     Route: 065
  6. MULTI-VITAMIN [Concomitant]
     Route: 065
  7. NEXIUM [Concomitant]
     Indication: GASTROOESOPHAGEAL REFLUX DISEASE
     Route: 065
  8. TRIPLE SOLUTION [Concomitant]
     Indication: HELICOBACTER GASTRITIS
     Route: 065
  9. PRILOSEC [Concomitant]
     Route: 048
     Dates: start: 20090201, end: 20090301
  10. LACTULOSE [Concomitant]
     Dosage: 10 GM/15ML
     Route: 065
     Dates: start: 20090301
  11. BENTYL [Concomitant]
     Indication: PAIN
     Dosage: AS NEEDED
     Route: 065
  12. PREVPAC [Concomitant]
     Route: 065

REACTIONS (7)
  - ABDOMINAL PAIN [None]
  - CONSTIPATION [None]
  - DIARRHOEA [None]
  - GALLBLADDER DISORDER [None]
  - NAUSEA [None]
  - POLLAKIURIA [None]
  - VOMITING [None]
